FAERS Safety Report 7730162-X (Version None)
Quarter: 2011Q3

REPORT INFORMATION
  Report Type: 
  Country: None (occurrence: None)
  Receive Date: 20110906
  Receipt Date: 20110902
  Transmission Date: 20111222
  Serious: Yes (Hospitalization, Other)
  Sender: FDA-Public Use
  Company Number: JP-PFIZER INC-2011204791

PATIENT
  Age: 45 Year
  Sex: Male

DRUGS (3)
  1. VARENICLINE TARTRATE [Suspect]
     Dosage: 0.5 MG DAILY
     Route: 048
     Dates: start: 20110712, end: 20110714
  2. VARENICLINE TARTRATE [Suspect]
     Dosage: 1 MG DAILY
     Route: 048
     Dates: start: 20110715, end: 20110718
  3. VARENICLINE TARTRATE [Suspect]
     Dosage: 2 MG DAILY
     Route: 048
     Dates: start: 20110719

REACTIONS (1)
  - ALTERED STATE OF CONSCIOUSNESS [None]
